FAERS Safety Report 8502956-4 (Version None)
Quarter: 2012Q3

REPORT INFORMATION
  Report Type: 
  Country: None (occurrence: None)
  Receive Date: 20120711
  Receipt Date: 20120704
  Transmission Date: 20120928
  Serious: Yes (Other)
  Sender: FDA-Public Use
  Company Number: JP-PFIZER INC-2012142940

PATIENT
  Age: 72 Year
  Sex: Male
  Weight: 71 kg

DRUGS (5)
  1. LYRICA [Suspect]
     Indication: HYPOAESTHESIA
     Dosage: 25 MG, 1X/DAY
     Route: 048
     Dates: start: 20111001, end: 20111120
  2. LYRICA [Suspect]
     Dosage: 50 MG, 1X/DAY
     Route: 048
     Dates: start: 20111121, end: 20111123
  3. TRANSAMINE CAP [Suspect]
     Indication: NASOPHARYNGITIS
     Dosage: 60 MG, 1X/DAY
     Route: 048
     Dates: start: 20111123, end: 20111123
  4. LOXONIN [Suspect]
     Indication: NASOPHARYNGITIS
     Dosage: 60 MG, 1X/DAY
     Route: 048
     Dates: start: 20111123, end: 20111123
  5. FLOMOX [Concomitant]
     Indication: NASOPHARYNGITIS
     Dosage: 100 MG, 1X/DAY
     Route: 048
     Dates: start: 20111123, end: 20111123

REACTIONS (3)
  - ROAD TRAFFIC ACCIDENT [None]
  - SOMNOLENCE [None]
  - LOSS OF CONSCIOUSNESS [None]
